FAERS Safety Report 25869423 (Version 1)
Quarter: 2025Q3

REPORT INFORMATION
  Report Type: Spontaneous
  Country: US (occurrence: None)
  Receive Date: 20250930
  Receipt Date: 20250930
  Transmission Date: 20251020
  Serious: Yes (Other)
  Sender: FDA-CTU
  Company Number: None

PATIENT
  Age: 24 Year
  Sex: Female

DRUGS (1)
  1. ULTOMIRIS [Suspect]
     Active Substance: RAVULIZUMAB-CWVZ
     Route: 041

REACTIONS (9)
  - Infusion related reaction [None]
  - Malaise [None]
  - Chest pain [None]
  - Dyspnoea [None]
  - Tremor [None]
  - Nonspecific reaction [None]
  - Respiratory rate decreased [None]
  - Wheezing [None]
  - Peripheral swelling [None]

NARRATIVE: CASE EVENT DATE: 20250818
